FAERS Safety Report 11067059 (Version 2)
Quarter: 2015Q2

REPORT INFORMATION
  Report Type: Spontaneous
  Country: US (occurrence: US)
  Receive Date: 20150425
  Receipt Date: 20150525
  Transmission Date: 20150821
  Serious: No
  Sender: FDA-Public Use
  Company Number: US-JNJFOC-20130713158

PATIENT
  Age: 61 Year
  Sex: Female
  Weight: 81.65 kg

DRUGS (5)
  1. CELEBREX [Concomitant]
     Active Substance: CELECOXIB
     Route: 048
  2. RISPERDAL [Concomitant]
     Active Substance: RISPERIDONE
     Route: 048
     Dates: start: 201306
  3. SIMPONI [Suspect]
     Active Substance: GOLIMUMAB
     Indication: RHEUMATOID ARTHRITIS
     Route: 058
     Dates: start: 201306
  4. REMERON [Concomitant]
     Active Substance: MIRTAZAPINE
     Indication: DEPRESSION
     Route: 048
     Dates: start: 201306
  5. METHOTREXATE [Concomitant]
     Active Substance: METHOTREXATE
     Indication: RHEUMATOID ARTHRITIS
     Dosage: 3 TABS/WEEK
     Route: 048
     Dates: start: 2013

REACTIONS (3)
  - Accidental exposure to product [Recovered/Resolved]
  - Device malfunction [Recovered/Resolved]
  - Drug dose omission [Not Recovered/Not Resolved]

NARRATIVE: CASE EVENT DATE: 20130719
